FAERS Safety Report 9701532 (Version 2)
Quarter: 2013Q4

REPORT INFORMATION
  Report Type: Spontaneous
  Country: US (occurrence: None)
  Receive Date: 20131119
  Receipt Date: 20131226
  Transmission Date: 20140711
  Serious: Yes (Hospitalization)
  Sender: FDA-Public Use
  Company Number: 2013AP009785

PATIENT
  Age: 22 Year
  Sex: Female
  Weight: 76 kg

DRUGS (1)
  1. FERRIPROX [Suspect]
     Indication: THALASSAEMIA BETA
     Route: 048
     Dates: start: 20130428, end: 20131008

REACTIONS (5)
  - Agranulocytosis [None]
  - Sepsis [None]
  - Platelet count decreased [None]
  - Leptotrichia infection [None]
  - White blood cell count decreased [None]
